FAERS Safety Report 6355718-0 (Version None)
Quarter: 2009Q3

REPORT INFORMATION
  Report Type: 
  Country: None (occurrence: None)
  Receive Date: 20090910
  Receipt Date: 20090902
  Transmission Date: 20100115
  Serious: Yes (Hospitalization)
  Sender: FDA-Public Use
  Company Number: GXKR2009GB09847

PATIENT
  Age: 67 Year
  Sex: Male

DRUGS (4)
  1. MIRTAZAPINE [Suspect]
     Indication: DEPRESSION
     Dosage: 15 MG, QD, ORAL
     Route: 048
     Dates: start: 20090224, end: 20090304
  2. AMLODIPINE [Concomitant]
  3. LANSOPRAZOLE [Concomitant]
  4. PREDNISOLONE [Concomitant]

REACTIONS (4)
  - ASTHENIA [None]
  - BLOOD SODIUM DECREASED [None]
  - CONVULSION [None]
  - POSTICTAL STATE [None]
